FAERS Safety Report 5449671-1 (Version None)
Quarter: 2007Q3

REPORT INFORMATION
  Report Type: 
  Country: None (occurrence: None)
  Receive Date: 20070910
  Receipt Date: 20070910
  Transmission Date: 20080115
  Serious: Yes (Other)
  Sender: FDA-Public Use
  Company Number: None

PATIENT
  Age: 45 Year
  Sex: Female
  Weight: 48.0813 kg

DRUGS (2)
  1. CORTEF [Suspect]
     Indication: CUSHING'S SYNDROME
     Dosage: 10MG MIDDAY + PM PO
     Route: 048
     Dates: start: 20070619, end: 20070621
  2. CORTEF [Suspect]
     Indication: HYPOPITUITARISM
     Dosage: 10MG MIDDAY + PM PO
     Route: 048
     Dates: start: 20070619, end: 20070621

REACTIONS (7)
  - CONVULSION [None]
  - DEHYDRATION [None]
  - DIARRHOEA [None]
  - DIZZINESS [None]
  - MIGRAINE [None]
  - PYREXIA [None]
  - VOMITING [None]
